FAERS Safety Report 5939121-0 (Version None)
Quarter: 2008Q4

REPORT INFORMATION
  Report Type: 
  Country: None (occurrence: None)
  Receive Date: 20081103
  Receipt Date: 20081030
  Transmission Date: 20090506
  Serious: Yes (Hospitalization)
  Sender: FDA-Public Use
  Company Number: B0544529A

PATIENT
  Age: 37 Year
  Sex: Male

DRUGS (8)
  1. LAMOTRIGINE [Suspect]
     Route: 048
     Dates: start: 20080301, end: 20080508
  2. DEPAKENE [Concomitant]
     Route: 048
     Dates: start: 20080301, end: 20080501
  3. METFORMIN HCL [Concomitant]
     Indication: DRUG USE FOR UNKNOWN INDICATION
     Route: 065
  4. ATORVASTATIN CALCIUM [Concomitant]
     Indication: DRUG USE FOR UNKNOWN INDICATION
     Route: 065
  5. NEBIVOLOL HCL [Concomitant]
     Indication: DRUG USE FOR UNKNOWN INDICATION
     Route: 065
  6. TELMISARTAN [Concomitant]
     Indication: DRUG USE FOR UNKNOWN INDICATION
     Route: 065
  7. PANTOPRAZOLE SODIUM [Concomitant]
     Indication: DRUG USE FOR UNKNOWN INDICATION
     Route: 065
  8. RIVOTRIL [Concomitant]
     Indication: DRUG USE FOR UNKNOWN INDICATION
     Route: 065

REACTIONS (8)
  - DERMATITIS BULLOUS [None]
  - PYREXIA [None]
  - RASH ERYTHEMATOUS [None]
  - RENAL IMPAIRMENT [None]
  - RETINAL OEDEMA [None]
  - SCLERAL DISCOLOURATION [None]
  - SKIN LESION [None]
  - TOXIC SKIN ERUPTION [None]
